FAERS Safety Report 9827353 (Version 1)
Quarter: 2013Q4

REPORT INFORMATION
  Report Type: Spontaneous
  Country: US (occurrence: None)
  Receive Date: 20131223
  Receipt Date: 20131223
  Transmission Date: 20140711
  Serious: No
  Sender: FDA-Public Use
  Company Number: 219549LEO

PATIENT
  Age: 68 Year
  Sex: Female

DRUGS (1)
  1. PICATO [Suspect]
     Indication: ACTINIC KERATOSIS
     Dates: start: 20121025, end: 20121027

REACTIONS (5)
  - Application site erythema [None]
  - Application site exfoliation [None]
  - Application site scab [None]
  - Application site haemorrhage [None]
  - Application site discolouration [None]
